FAERS Safety Report 5339885-3 (Version None)
Quarter: 2007Q2

REPORT INFORMATION
  Report Type: 
  Country: None (occurrence: None)
  Receive Date: 20070529
  Receipt Date: 20070522
  Transmission Date: 20071010
  Serious: Yes (Disabling)
  Sender: FDA-Public Use
  Company Number: 2007SP005452

PATIENT
  Age: 49 Year
  Sex: Female
  Weight: 90.2658 kg

DRUGS (2)
  1. PEG-INTRON [Suspect]
     Indication: HEPATITIS C
     Dates: start: 20070301
  2. REBETOL [Suspect]
     Indication: HEPATITIS C
     Dosage: PO
     Route: 048
     Dates: start: 20070301

REACTIONS (19)
  - ABASIA [None]
  - CHILLS [None]
  - DRY SKIN [None]
  - DYSGEUSIA [None]
  - FATIGUE [None]
  - HYPOAESTHESIA [None]
  - IRRITABILITY [None]
  - MUSCLE TWITCHING [None]
  - MUSCULAR WEAKNESS [None]
  - MYALGIA [None]
  - NAUSEA [None]
  - PARAESTHESIA [None]
  - PAROSMIA [None]
  - THIRST [None]
  - THROAT IRRITATION [None]
  - TREMOR [None]
  - VOMITING [None]
  - WEIGHT DECREASED [None]
  - WEIGHT INCREASED [None]
